FAERS Safety Report 19661227 (Version 1)
Quarter: 2021Q3

REPORT INFORMATION
  Report Type: Spontaneous
  Country: CN (occurrence: CN)
  Receive Date: 20210805
  Receipt Date: 20210805
  Transmission Date: 20211014
  Serious: Yes (Other)
  Sender: FDA-Public Use
  Company Number: CN-PFIZER INC-202100958195

PATIENT
  Age: 71 Year
  Sex: Female
  Weight: 58 kg

DRUGS (1)
  1. CELECOXIB. [Suspect]
     Active Substance: CELECOXIB
     Indication: BACK PAIN
     Dosage: 0.2 G, 1X/DAY
     Route: 048
     Dates: start: 20210715, end: 20210716

REACTIONS (3)
  - Gastrointestinal disorder [Recovering/Resolving]
  - Abdominal discomfort [Recovering/Resolving]
  - Gastrointestinal pain [Recovering/Resolving]

NARRATIVE: CASE EVENT DATE: 20210716
